FAERS Safety Report 7874135-5 (Version None)
Quarter: 2011Q4

REPORT INFORMATION
  Report Type: 
  Country: None (occurrence: None)
  Receive Date: 20111030
  Receipt Date: 20110516
  Transmission Date: 20120403
  Serious: No
  Sender: FDA-Public Use
  Company Number: US-AMGEN-USASP2011025213

PATIENT
  Sex: Male

DRUGS (2)
  1. HUMIRA [Concomitant]
  2. ENBREL [Suspect]
     Indication: PSORIASIS
     Dosage: 25 MG, 2 TIMES/WK
     Dates: start: 20080101

REACTIONS (2)
  - INJECTION SITE PAIN [None]
  - LUNG INFECTION [None]
